FAERS Safety Report 7604508-7 (Version None)
Quarter: 2011Q3

REPORT INFORMATION
  Report Type: 
  Country: None (occurrence: None)
  Receive Date: 20110712
  Receipt Date: 20110707
  Transmission Date: 20111222
  Serious: Yes (Hospitalization)
  Sender: FDA-Public Use
  Company Number: FR-PFIZER INC-2011152287

PATIENT
  Age: 23 Year
  Sex: Male

DRUGS (3)
  1. CODEINE PHOSPHATE AND ACETAMINOPHEN [Suspect]
     Indication: PHARYNGITIS
  2. IBUPROFEN [Suspect]
     Indication: PHARYNGITIS
  3. AZITHROMYCIN [Suspect]
     Indication: PHARYNGITIS

REACTIONS (1)
  - PERITONSILLAR ABSCESS [None]
